FAERS Safety Report 9252777 (Version 1)
Quarter: 2013Q1

REPORT INFORMATION
  Report Type: Spontaneous
  Country: US (occurrence: None)
  Receive Date: 20130305
  Receipt Date: 20130305
  Transmission Date: 20140127
  Serious: Yes (Hospitalization)
  Sender: FDA-Public Use
  Company Number: 163-201880-12091419

PATIENT
  Age: 66 Year
  Sex: Female

DRUGS (9)
  1. REVLIMID [Suspect]
     Indication: MYELODYSPLASTIC SYNDROME
     Dosage: 1 IN 1 D
     Route: 048
     Dates: start: 201005, end: 2011
  2. COZAAR (LOSARTAN POTASSIUM) (50 MILLIGRAM, TABLETS) (LOSARTAN POTASSIUM) [Concomitant]
  3. ENABLEX (DARIFENACIN HYDROBROMIDE) [Concomitant]
  4. FUROSEMIDE (FUROSEMIDE) [Concomitant]
  5. HUMALOG (INSULIN LISPRO) [Concomitant]
  6. INDERAL LA (PROPRANOLOL HYDROCHLORIDE) LONG-ACTING CAPSULES, 80MG; AKRIMAX ` [Concomitant]
  7. IRON (IRON) [Concomitant]
  8. LANTUS (INSULIN GLARGINE) [Concomitant]
  9. POTASSIUM (POTASSIUM) [Concomitant]

REACTIONS (1)
  - Blood glucose decreased [None]
